FAERS Safety Report 5767869-X (Version None)
Quarter: 2008Q2

REPORT INFORMATION
  Report Type: 
  Country: None (occurrence: None)
  Receive Date: 20080612
  Receipt Date: 20080530
  Transmission Date: 20081010
  Serious: Yes (Death)
  Sender: FDA-Public Use
  Company Number: MX-ROCHE-568253

PATIENT
  Age: 48 Year
  Sex: Female
  Weight: 52 kg

DRUGS (3)
  1. PEGASYS [Suspect]
     Indication: HEPATITIS C
     Route: 058
     Dates: start: 20080327, end: 20080515
  2. RIBAVIRIN [Concomitant]
     Indication: HEPATITIS C
     Dosage: DRUG NAME: RIBAVIRINE, FREQUENCY REPORTED AS DAILY (QD)
     Route: 048
     Dates: start: 20080327, end: 20080519
  3. ACETAMINOPHEN [Concomitant]
     Dosage: FREQUENCY REPORTED AS DAILY (QD)
     Route: 048
     Dates: start: 20080327, end: 20080519

REACTIONS (2)
  - ASCITES [None]
  - PERITONITIS BACTERIAL [None]
